FAERS Safety Report 22773440 (Version 14)
Quarter: 2025Q1

REPORT INFORMATION
  Report Type: Spontaneous
  Country: US (occurrence: US)
  Receive Date: 20230801
  Receipt Date: 20250113
  Transmission Date: 20250409
  Serious: Yes (Hospitalization)
  Sender: BRISTOL-MYERS SQUIBB COMPANY
  Company Number: US-BRISTOL-MYERS SQUIBB COMPANY-2023-106708

PATIENT
  Age: 80 Year
  Sex: Female

DRUGS (13)
  1. POMALYST [Suspect]
     Active Substance: POMALIDOMIDE
     Indication: Plasma cell myeloma
     Dosage: POMALYST= DAILY FOR 21 DAYS ( ONCE DAILY FOR 21 DAYS)
     Route: 048
     Dates: start: 202305
  2. POMALYST [Suspect]
     Active Substance: POMALIDOMIDE
     Indication: Malignant lymphoid neoplasm
     Dosage: FREQUENCY: 1 TIME A DAY FOR 21 DAYS ON AND 7 DAYS OFF
     Route: 048
     Dates: end: 20240211
  3. POMALYST [Suspect]
     Active Substance: POMALIDOMIDE
     Indication: Haematopoietic neoplasm
     Dosage: EVERY OTHER DAY FOR 21 DAYS ON AND 7 DAYS OFF
     Route: 048
     Dates: start: 202305
  4. POMALYST [Suspect]
     Active Substance: POMALIDOMIDE
     Dosage: EVERY OTHER DAY FOR 21 DAYS AND THEN 7 DAYS OFF
     Route: 048
  5. NINLARO [Suspect]
     Active Substance: IXAZOMIB CITRATE
     Indication: Plasma cell myeloma
     Dosage: TAKE 1 CAPSULE BY MOUTH ON DAYS 1, 8, 15 OF A 28 DAY CYCLE
     Route: 048
     Dates: start: 202305
  6. DEXAMETHASONE [Concomitant]
     Active Substance: DEXAMETHASONE
     Indication: Product used for unknown indication
  7. ATENOLOL [Concomitant]
     Active Substance: ATENOLOL
     Indication: Product used for unknown indication
  8. ZOLEDRONIC ACID [Concomitant]
     Active Substance: ZOLEDRONIC ACID
     Indication: Product used for unknown indication
  9. ACYCLOVIR [Concomitant]
     Active Substance: ACYCLOVIR
     Indication: Product used for unknown indication
  10. ASPIRIN [Concomitant]
     Active Substance: ASPIRIN
     Indication: Product used for unknown indication
  11. LISINOPRIL [Concomitant]
     Active Substance: LISINOPRIL
     Indication: Product used for unknown indication
  12. AMLODIPINE BESYLATE [Concomitant]
     Active Substance: AMLODIPINE BESYLATE
     Indication: Product used for unknown indication
  13. VITAMIN D3 [Concomitant]
     Active Substance: CHOLECALCIFEROL
     Indication: Product used for unknown indication

REACTIONS (22)
  - Vertigo [Recovered/Resolved]
  - Dehydration [Unknown]
  - Peripheral coldness [Unknown]
  - Peripheral swelling [Not Recovered/Not Resolved]
  - Feeling hot [Unknown]
  - Fatigue [Unknown]
  - Asthenia [Unknown]
  - Balance disorder [Unknown]
  - Joint swelling [Unknown]
  - Arthralgia [Unknown]
  - Joint injury [Unknown]
  - Memory impairment [Unknown]
  - Amnesia [Unknown]
  - Paraesthesia [Recovering/Resolving]
  - Burning sensation [Unknown]
  - Off label use [Unknown]
  - Brain fog [Unknown]
  - Solar lentigo [Unknown]
  - Hair growth abnormal [Unknown]
  - Pain in extremity [Unknown]
  - Cardiovascular disorder [Unknown]
  - Hypoaesthesia [Unknown]

NARRATIVE: CASE EVENT DATE: 20230720
